FAERS Safety Report 14479250 (Version 2)
Quarter: 2018Q2

REPORT INFORMATION
  Report Type: Report from Study
  Country: FR (occurrence: FR)
  Receive Date: 20180202
  Receipt Date: 20180406
  Transmission Date: 20180711
  Serious: Yes (Hospitalization)
  Sender: FDA-Public Use
  Company Number: FR-TAKEDA-2018TUS002830

PATIENT
  Sex: Female

DRUGS (6)
  1. VEDOLIZUMAB [Suspect]
     Active Substance: VEDOLIZUMAB
     Indication: PRODUCT USED FOR UNKNOWN INDICATION
     Dosage: UNK
     Route: 042
     Dates: start: 20170111
  2. LASILIX                            /00032601/ [Concomitant]
     Active Substance: FUROSEMIDE
     Dosage: UNK
  3. SPECIAFOLDINE [Concomitant]
     Active Substance: FOLIC ACID
     Dosage: UNK
  4. IMOVANE [Concomitant]
     Active Substance: ZOPICLONE
     Dosage: UNK
  5. SOTALEX [Concomitant]
     Active Substance: SOTALOL
     Dosage: UNK
  6. CROMABAK [Concomitant]
     Active Substance: CROMOLYN SODIUM
     Dosage: UNK

REACTIONS (1)
  - Polyp [Recovered/Resolved]

NARRATIVE: CASE EVENT DATE: 20170905
